FAERS Safety Report 13188272 (Version 1)
Quarter: 2017Q1

REPORT INFORMATION
  Report Type: Spontaneous
  Country: US (occurrence: US)
  Receive Date: 20170206
  Receipt Date: 20170206
  Transmission Date: 20170428
  Serious: Yes (Disabling)
  Sender: FDA-Public Use
  Company Number: None

PATIENT
  Age: 81 Year
  Sex: Female
  Weight: 56.7 kg

DRUGS (10)
  1. SULFAMETHOXAZOLE/MP DS TABLET [Suspect]
     Active Substance: SULFAMETHOXAZOLE\TRIMETHOPRIM
     Indication: SINUSITIS
     Dosage: QUANITY - 1 PILL?FREQUENCY - 2X DAILY FOR 10 DAYS
     Route: 048
     Dates: start: 20170124, end: 20170127
  2. VITAMIN C [Concomitant]
     Active Substance: ASCORBIC ACID
  3. ADVAIR DISKUS [Concomitant]
     Active Substance: FLUTICASONE PROPIONATE\SALMETEROL XINAFOATE
  4. LUTEIN [Concomitant]
     Active Substance: LUTEIN
  5. OMEGA FISH OIL [Concomitant]
     Active Substance: FISH OIL\OMEGA-3 FATTY ACIDS
  6. TEKTURNA [Concomitant]
     Active Substance: ALISKIREN HEMIFUMARATE
  7. OMEPRAZOLE. [Concomitant]
     Active Substance: OMEPRAZOLE
  8. ATORVASTATIN [Concomitant]
     Active Substance: ATORVASTATIN
  9. VITAMIN D3 [Concomitant]
     Active Substance: CHOLECALCIFEROL
  10. ENTERIC LOW-DOSE ASPIRIN [Concomitant]

REACTIONS (2)
  - Pain in jaw [None]
  - Mastication disorder [None]

NARRATIVE: CASE EVENT DATE: 20170126
